FAERS Safety Report 7563470-6 (Version None)
Quarter: 2011Q2

REPORT INFORMATION
  Report Type: 
  Country: None (occurrence: None)
  Receive Date: 20110622
  Receipt Date: 20110609
  Transmission Date: 20111010
  Serious: Yes (Other)
  Sender: FDA-Public Use
  Company Number: CH-ELI_LILLY_AND_COMPANY-CH201105003469

PATIENT
  Age: 33 Year
  Sex: Male
  Weight: 60 kg

DRUGS (15)
  1. DEPAKENE [Concomitant]
     Dosage: 1250 MG, QD
  2. TALOXA [Concomitant]
     Indication: EPILEPSY
     Dosage: 600 MG, TID
  3. BELLAFIT N [Concomitant]
     Dosage: UNK, TID
  4. ZYPREXA [Suspect]
     Dosage: 2.5 MG, EACH MORNING
     Route: 048
  5. ZYPREXA [Suspect]
     Dosage: 2.5 MG, BID
     Route: 048
  6. ZYPREXA [Suspect]
     Indication: ANXIETY
     Dosage: 10 MG, QD
     Route: 048
  7. URBANYL [Concomitant]
     Indication: EPILEPSY
     Dosage: 20 MG, QD
     Route: 048
  8. LORAZEPAM [Concomitant]
     Dosage: 1 MG, PRN
  9. ZYPREXA [Suspect]
     Dosage: 5 MG, QD
     Route: 048
  10. DEPAKENE [Concomitant]
     Indication: EPILEPSY
     Dosage: 1500 MG, QD
     Route: 048
  11. PETINUTIN [Concomitant]
     Indication: EPILEPSY
     Dosage: 300 MG, QD
     Route: 048
  12. LAMICTAL [Concomitant]
     Indication: EPILEPSY
     Dosage: 100 MG, BID
     Route: 048
  13. PHENHYDAN                          /00017401/ [Concomitant]
     Indication: EPILEPSY
     Dosage: 300 MG, QD
     Route: 048
  14. SODIUM CHLORIDE [Concomitant]
     Dosage: 2 DF, TID
     Dates: start: 20110517, end: 20110523
  15. SODIUM CHLORIDE [Concomitant]
     Dosage: 1 DF, TID
     Dates: start: 20110524, end: 20110614

REACTIONS (9)
  - LEUKOPENIA [None]
  - OEDEMA [None]
  - SOMNOLENCE [None]
  - BLOOD URIC ACID DECREASED [None]
  - BLOOD SODIUM DECREASED [None]
  - HAEMOGLOBIN DECREASED [None]
  - PLATELET COUNT DECREASED [None]
  - BLOOD CREATININE DECREASED [None]
  - OFF LABEL USE [None]
